FAERS Safety Report 12659026 (Version 1)
Quarter: 2016Q3

REPORT INFORMATION
  Report Type: Spontaneous
  Country: US (occurrence: None)
  Receive Date: 20160816
  Receipt Date: 20160816
  Transmission Date: 20161109
  Serious: No
  Sender: FDA-Public Use
  Company Number: None

PATIENT
  Age: 93 Year
  Sex: Female
  Weight: 68.95 kg

DRUGS (20)
  1. PAROXETINE. [Concomitant]
     Active Substance: PAROXETINE
  2. NEBULIZER [Concomitant]
     Active Substance: DEVICE
  3. PREDNISON [Concomitant]
     Active Substance: PREDNISONE
  4. MULTIVITAMIN [Concomitant]
     Active Substance: VITAMINS
  5. LASIX [Concomitant]
     Active Substance: FUROSEMIDE
  6. CALTRATE [Concomitant]
     Active Substance: CALCIUM CARBONATE
  7. PA [Concomitant]
     Active Substance: ASPIRIN\CAFFEINE\PROMETHAZINE\SALICYLAMIDE
  8. SENTRUM SILVER [Concomitant]
     Active Substance: VITAMINS
  9. ALBUTEROL. [Concomitant]
     Active Substance: ALBUTEROL
  10. IPATROPIUM [Concomitant]
  11. MUCINEX [Concomitant]
     Active Substance: GUAIFENESIN
  12. CLARITIN [Concomitant]
     Active Substance: LORATADINE
  13. POTASSIUM [Concomitant]
     Active Substance: POTASSIUM
  14. TYLENOL ARTHRITIS PAIN [Concomitant]
     Active Substance: ACETAMINOPHEN
  15. CEFUROXIME. [Suspect]
     Active Substance: CEFUROXIME
     Indication: URINARY TRACT INFECTION BACTERIAL
     Dosage: 1 PACKET 3000 MG ONCE MOUTH-PKG. POWDER
     Route: 048
     Dates: start: 20160518
  16. CEFUROXIME. [Suspect]
     Active Substance: CEFUROXIME
     Indication: INFLAMMATION
     Dosage: 1 PACKET 3000 MG ONCE MOUTH-PKG. POWDER
     Route: 048
     Dates: start: 20160518
  17. GLIMEPERIDE [Concomitant]
     Active Substance: GLIMEPIRIDE
  18. MONTELUKAST [Concomitant]
     Active Substance: MONTELUKAST SODIUM
  19. OXYBUTYNIN [Concomitant]
     Active Substance: OXYBUTYNIN
  20. TUMS [Concomitant]
     Active Substance: CALCIUM CARBONATE

REACTIONS (3)
  - Urine abnormality [None]
  - Muscle spasms [None]
  - Dysuria [None]
